FAERS Safety Report 5135076-X (Version None)
Quarter: 2006Q4

REPORT INFORMATION
  Report Type: 
  Country: None (occurrence: None)
  Receive Date: 20060831
  Receipt Date: 20050817
  Transmission Date: 20070319
  Serious: Yes (Other)
  Sender: FDA-Public Use
  Company Number: 2005088697

PATIENT
  Sex: Male

DRUGS (7)
  1. CAVERJECT [Suspect]
     Indication: ILL-DEFINED DISORDER
     Dosage: 40 MCG
  2. CIALIS [Suspect]
     Indication: ILL-DEFINED DISORDER
     Dosage: 20 MG
  3. ANTIHYPERTENSIVES (ANTIHYPERTENSIVES) [Suspect]
     Indication: ILL-DEFINED DISORDER
  4. HYDROCHLOROTHIAZIDE [Concomitant]
  5. DIOVAN [Concomitant]
  6. ATENOLOL [Concomitant]
  7. PROSCAR [Concomitant]

REACTIONS (5)
  - ASTHENIA [None]
  - DRUG INTERACTION [None]
  - HYPOTENSION [None]
  - STARING [None]
  - URINARY INCONTINENCE [None]
